FAERS Safety Report 24845764 (Version 1)
Quarter: 2025Q1

REPORT INFORMATION
  Report Type: Spontaneous
  Country: US (occurrence: US)
  Receive Date: 20250115
  Receipt Date: 20250115
  Transmission Date: 20250409
  Serious: No
  Sender: MERCK
  Company Number: US-009507513-2501USA003546

PATIENT
  Age: 40 Year
  Sex: Male

DRUGS (4)
  1. NOXAFIL [Suspect]
     Active Substance: POSACONAZOLE
     Indication: Aspergillus infection
  2. NOXAFIL [Suspect]
     Active Substance: POSACONAZOLE
     Indication: Device related infection
  3. NOXAFIL [Suspect]
     Active Substance: POSACONAZOLE
     Indication: Soft tissue infection
  4. NOXAFIL [Suspect]
     Active Substance: POSACONAZOLE
     Indication: Mucormycosis

REACTIONS (1)
  - Product use in unapproved indication [Unknown]
